FAERS Safety Report 5142871-X (Version None)
Quarter: 2006Q4

REPORT INFORMATION
  Report Type: 
  Country: None (occurrence: None)
  Receive Date: 20061030
  Receipt Date: 20061023
  Transmission Date: 20070319
  Serious: Yes (Death)
  Sender: FDA-Public Use
  Company Number: 231564

PATIENT
  Sex: Female

DRUGS (1)
  1. ACTIVACIN (ALTEPLASE) PWDR + SOLVENT, INFUSION SOLN [Suspect]
     Indication: CEREBRAL INFARCTION
     Dosage: INTRAVENOUS
     Route: 042
     Dates: start: 20061011, end: 20061011

REACTIONS (2)
  - ARTERIAL RUPTURE [None]
  - SHOCK [None]
